FAERS Safety Report 7703150-7 (Version None)
Quarter: 2011Q3

REPORT INFORMATION
  Report Type: 
  Country: None (occurrence: None)
  Receive Date: 20110823
  Receipt Date: 20110822
  Transmission Date: 20111222
  Serious: Yes (Other)
  Sender: FDA-Public Use
  Company Number: JP-PFIZER INC-2011193063

PATIENT
  Age: 48 Year
  Sex: Male

DRUGS (2)
  1. VARENICLINE TARTRATE [Suspect]
     Indication: SMOKING CESSATION THERAPY
     Dosage: 0.5 MG/DAY
     Route: 048
  2. VARENICLINE TARTRATE [Suspect]
     Dosage: 1 MG/DAY
     Route: 048

REACTIONS (2)
  - STRESS [None]
  - HAEMATOCHEZIA [None]
